FAERS Safety Report 5312740-0 (Version None)
Quarter: 2007Q2

REPORT INFORMATION
  Report Type: 
  Country: None (occurrence: None)
  Receive Date: 20070430
  Receipt Date: 20070417
  Transmission Date: 20071010
  Serious: Yes (Hospitalization)
  Sender: FDA-Public Use
  Company Number: FR-ROCHE-491027

PATIENT
  Age: 72 Year
  Sex: Male
  Weight: 92 kg

DRUGS (8)
  1. VALGANCICLOVIR HCL [Suspect]
     Route: 048
     Dates: start: 20061229
  2. SOLUPRED [Concomitant]
     Dates: start: 20061225
  3. CELLCEPT [Concomitant]
     Dates: start: 20061225
  4. PROGRAF [Concomitant]
     Dates: start: 20061226
  5. OMEPRAZOLE [Concomitant]
  6. KARDEGIC [Concomitant]
     Dates: start: 20070301
  7. ATENOL [Concomitant]
     Dates: start: 20070301
  8. AMLOR [Concomitant]
     Dates: start: 20070219

REACTIONS (3)
  - ASTHENIA [None]
  - COUGH [None]
  - PYREXIA [None]
